FAERS Safety Report 4277326-8 (Version None)
Quarter: 2004Q1

REPORT INFORMATION
  Report Type: 
  Country: None (occurrence: None)
  Receive Date: 20040121
  Receipt Date: 20040113
  Transmission Date: 20041129
  Serious: Yes (Other)
  Sender: FDA-Public Use
  Company Number: 2004-01-0533

PATIENT
  Sex: Male

DRUGS (2)
  1. PEG-INTRON [Suspect]
     Indication: HEPATITIS C
     Dosage: SUBCUTANEOUS
     Route: 058
     Dates: end: 20030201
  2. REBETOL [Suspect]
     Indication: HEPATITIS C
     Dosage: ORAL
     Route: 048
     Dates: end: 20030201

REACTIONS (7)
  - AMNESIA [None]
  - DENTAL CARIES [None]
  - DISTURBANCE IN ATTENTION [None]
  - GINGIVAL DISORDER [None]
  - MOOD SWINGS [None]
  - TEETH BRITTLE [None]
  - TOOTH LOSS [None]
